FAERS Safety Report 7213899-0 (Version None)
Quarter: 2011Q1

REPORT INFORMATION
  Report Type: 
  Country: None (occurrence: None)
  Receive Date: 20110106
  Receipt Date: 20101230
  Transmission Date: 20110831
  Serious: Yes (Other)
  Sender: FDA-Public Use
  Company Number: US-ABBOTT-11P-163-0694569-00

PATIENT
  Sex: Male
  Weight: 113.5 kg

DRUGS (2)
  1. HUMIRA [Suspect]
     Route: 058
     Dates: start: 20100901
  2. HUMIRA [Suspect]
     Indication: ANKYLOSING SPONDYLITIS
     Route: 058
     Dates: start: 20100201, end: 20100901

REACTIONS (5)
  - ARTHRALGIA [None]
  - BACK PAIN [None]
  - SUPRAVENTRICULAR TACHYCARDIA [None]
  - DRUG INEFFECTIVE [None]
  - NECK PAIN [None]
